FAERS Safety Report 17982151 (Version 2)
Quarter: 2020Q3

REPORT INFORMATION
  Report Type: Spontaneous
  Country: US (occurrence: US)
  Receive Date: 20200706
  Receipt Date: 20200805
  Transmission Date: 20201103
  Serious: Yes (Other)
  Sender: FDA-Public Use
  Company Number: US-LUPIN PHARMACEUTICALS INC.-2020-03103

PATIENT
  Age: 49 Year
  Sex: Female
  Weight: 94.79 kg

DRUGS (4)
  1. NOVOLOG [Concomitant]
     Active Substance: INSULIN ASPART
     Indication: DIABETES MELLITUS
     Dosage: UNK
     Route: 065
  2. METFORMIN HYDROCHLORIDE EXTENDED RELEASE TABLET USP 500 MG [Suspect]
     Active Substance: METFORMIN HYDROCHLORIDE
     Indication: DIABETES MELLITUS
     Dosage: 1000 MILLIGRAM, BID (2 TABLETS TWICE DAILY)
     Route: 048
     Dates: start: 20200610
  3. TRESIVAC [Concomitant]
     Indication: DIABETES MELLITUS
     Dosage: 36 UNIT
     Route: 065
  4. APRISO [Concomitant]
     Active Substance: MESALAMINE
     Indication: COLITIS ULCERATIVE
     Dosage: 8 DOSAGE FORM, QD
     Route: 048

REACTIONS (5)
  - Sleep deficit [Not Recovered/Not Resolved]
  - Glycosylated haemoglobin increased [Not Recovered/Not Resolved]
  - Colitis ulcerative [Not Recovered/Not Resolved]
  - Blood glucose increased [Not Recovered/Not Resolved]
  - Stress [Not Recovered/Not Resolved]

NARRATIVE: CASE EVENT DATE: 20200610
